FAERS Safety Report 5886670-X (Version None)
Quarter: 2008Q3

REPORT INFORMATION
  Report Type: 
  Country: None (occurrence: None)
  Receive Date: 20080917
  Receipt Date: 20080910
  Transmission Date: 20090109
  Serious: Yes (Other)
  Sender: FDA-Public Use
  Company Number: PHHY2008GB15675

PATIENT
  Sex: Male

DRUGS (1)
  1. EXJADE [Suspect]
     Dosage: UNK
     Dates: start: 20071005

REACTIONS (8)
  - BLOOD BILIRUBIN INCREASED [None]
  - BLOOD CALCIUM DECREASED [None]
  - BLOOD PHOSPHORUS INCREASED [None]
  - BLOOD THYROID STIMULATING HORMONE INCREASED [None]
  - HAEMATURIA [None]
  - NEUTROPHIL COUNT DECREASED [None]
  - PLATELET COUNT INCREASED [None]
  - PROTEINURIA [None]
